FAERS Safety Report 8341897-2 (Version None)
Quarter: 2012Q2

REPORT INFORMATION
  Report Type: 
  Country: None (occurrence: None)
  Receive Date: 20120507
  Receipt Date: 20120430
  Transmission Date: 20120825
  Serious: Yes (Hospitalization)
  Sender: FDA-Public Use
  Company Number: DE-TEVA-336071USA

PATIENT
  Sex: Female
  Weight: 72 kg

DRUGS (2)
  1. TREANDA [Suspect]
     Route: 042
     Dates: start: 20101221
  2. RITUXIMAB [Suspect]
     Route: 042
     Dates: start: 20101220

REACTIONS (1)
  - GENERAL PHYSICAL HEALTH DETERIORATION [None]
